FAERS Safety Report 15312281 (Version 2)
Quarter: 2018Q3

REPORT INFORMATION
  Report Type: Spontaneous
  Country: US (occurrence: US)
  Receive Date: 20180823
  Receipt Date: 20180917
  Transmission Date: 20181010
  Serious: Yes (Hospitalization)
  Sender: FDA-Public Use
  Company Number: US-VERTEX PHARMACEUTICALS-2018-005848

PATIENT
  Age: 54 Year
  Sex: Female

DRUGS (23)
  1. SALINE                             /00075401/ [Concomitant]
     Active Substance: SODIUM CHLORIDE
  2. CALCIUM CITRATE +D [Concomitant]
     Active Substance: CALCIUM CITRATE\VITAMIN D
  3. CAYSTON [Concomitant]
     Active Substance: AZTREONAM
  4. AZITHROMYCIN ANHYDROUS. [Concomitant]
     Active Substance: AZITHROMYCIN ANHYDROUS
  5. DICLOFENAC [Concomitant]
     Active Substance: DICLOFENAC
  6. LORATADINE. [Concomitant]
     Active Substance: LORATADINE
  7. PULMOZYME [Concomitant]
     Active Substance: DORNASE ALFA
  8. KALYDECO [Suspect]
     Active Substance: IVACAFTOR
     Indication: CYSTIC FIBROSIS
     Dosage: 150 MG, BID
     Route: 048
     Dates: start: 20150110
  9. SODIUM CHLORIDE. [Concomitant]
     Active Substance: SODIUM CHLORIDE
  10. VITAMIN D3 [Concomitant]
     Active Substance: CHOLECALCIFEROL
  11. URSODIOL. [Concomitant]
     Active Substance: URSODIOL
  12. FERROUS SULFATE. [Concomitant]
     Active Substance: FERROUS SULFATE
  13. GUANFACINE. [Concomitant]
     Active Substance: GUANFACINE
  14. QUETIAPINE. [Concomitant]
     Active Substance: QUETIAPINE
  15. ACETYLCYSTEIN [Concomitant]
     Active Substance: ACETYLCYSTEINE
  16. ADVAIR HFA [Concomitant]
     Active Substance: FLUTICASONE PROPIONATE\SALMETEROL XINAFOATE
  17. CLONAZEPAM. [Concomitant]
     Active Substance: CLONAZEPAM
  18. NORCO [Concomitant]
     Active Substance: ACETAMINOPHEN\HYDROCODONE BITARTRATE
  19. ZOLOFT [Concomitant]
     Active Substance: SERTRALINE HYDROCHLORIDE
  20. TOPAMAX [Concomitant]
     Active Substance: TOPIRAMATE
  21. MUCINEX [Concomitant]
     Active Substance: GUAIFENESIN
  22. PANCREAZE                          /00620701/ [Concomitant]
  23. PROTONIX                           /00661201/ [Concomitant]
     Active Substance: OMEPRAZOLE

REACTIONS (1)
  - Cystic fibrosis [Unknown]

NARRATIVE: CASE EVENT DATE: 20180803
